FAERS Safety Report 4805646-4 (Version None)
Quarter: 2005Q4

REPORT INFORMATION
  Report Type: 
  Country: None (occurrence: None)
  Receive Date: 20051018
  Receipt Date: 20051011
  Transmission Date: 20060501
  Serious: Yes (Life-Threatening, Hospitalization, Disabling, Other)
  Sender: FDA-Public Use
  Company Number: 2003008068

PATIENT
  Sex: Female
  Weight: 158.759 kg

DRUGS (5)
  1. NEURONTIN [Suspect]
     Indication: CONVULSION
     Dates: start: 19950101, end: 20010101
  2. DILANTIN [Suspect]
     Indication: CONVULSION
     Dosage: 1200 MG TID, ORAL
     Dates: start: 19950101, end: 20010101
  3. ASPIRIN [Suspect]
  4. VITAMINS WITH MINERALS (VITAMINS WITH MINERALS) [Suspect]
     Indication: ANAEMIA
  5. MEGESTEROL (MEGESTEROL) [Concomitant]
     Indication: ANAEMIA

REACTIONS (24)
  - APLASTIC ANAEMIA [None]
  - ARTHRALGIA [None]
  - ASTHENIA [None]
  - BALANCE DISORDER [None]
  - BURNS SECOND DEGREE [None]
  - COMA [None]
  - COORDINATION ABNORMAL [None]
  - DIFFICULTY IN WALKING [None]
  - DISTURBANCE IN ATTENTION [None]
  - DRY MOUTH [None]
  - FALL [None]
  - HEART RATE INCREASED [None]
  - MUSCLE DISORDER [None]
  - MUSCLE SPASMS [None]
  - NERVE INJURY [None]
  - NERVOUSNESS [None]
  - PAIN [None]
  - PAIN IN EXTREMITY [None]
  - PANIC ATTACK [None]
  - PARALYSIS [None]
  - SPEECH DISORDER [None]
  - STATUS EPILEPTICUS [None]
  - TREMOR [None]
  - WHEELCHAIR USER [None]
